FAERS Safety Report 6376569-7 (Version None)
Quarter: 2009Q3

REPORT INFORMATION
  Report Type: 
  Country: None (occurrence: None)
  Receive Date: 20090925
  Receipt Date: 20090916
  Transmission Date: 20100115
  Serious: Yes (Other)
  Sender: FDA-Public Use
  Company Number: US-PFIZER INC-2009249100

PATIENT
  Sex: Female
  Weight: 102.05 kg

DRUGS (5)
  1. TIKOSYN [Suspect]
     Indication: HEART RATE IRREGULAR
     Dosage: FREQUENCY: 2X/DAY, EVERY DAY;
     Route: 048
     Dates: start: 20090201
  2. METFORMIN HCL [Interacting]
  3. SPIRONOLACTONE [Concomitant]
     Dosage: 50 MG, UNK
     Route: 048
  4. ACIPHEX [Concomitant]
     Dosage: UNK
     Route: 048
  5. VITAMIN B12 SHOT [Concomitant]

REACTIONS (3)
  - DRUG INTERACTION [None]
  - GALLBLADDER PAIN [None]
  - HEPATITIS C [None]
